FAERS Safety Report 4787945-8 (Version None)
Quarter: 2005Q3

REPORT INFORMATION
  Report Type: 
  Country: None (occurrence: None)
  Receive Date: 20050926
  Receipt Date: 20050720
  Transmission Date: 20060218
  Serious: Yes (Hospitalization)
  Sender: FDA-Public Use
  Company Number: 215716

PATIENT
  Age: 68 Year
  Sex: Female
  Weight: 57.6 kg

DRUGS (13)
  1. AVASTIN [Suspect]
     Indication: COLORECTAL CANCER METASTATIC
     Dosage: 5 MG/KG, Q2W
     Dates: start: 20050418, end: 20050516
  2. OXALIPLATIN (OXALIPLATIN) [Concomitant]
  3. FLUOROURACIL [Concomitant]
  4. LISINOPRIL [Concomitant]
  5. LABETALOL (LABETALOL HYDROCHLORIDE) [Concomitant]
  6. ACIPHEX [Concomitant]
  7. NORVASC [Concomitant]
  8. POTASSIUM (POTASSIUM NOS) [Concomitant]
  9. FENTANYL (FENTANYL CITRATE) [Concomitant]
  10. CEFZIL [Concomitant]
  11. XANAX [Concomitant]
  12. ASPIRIN [Concomitant]
  13. CALCIUM (CALCIUM NOS) [Concomitant]

REACTIONS (1)
  - GASTROINTESTINAL NECROSIS [None]
